FAERS Safety Report 10077185 (Version 1)
Quarter: 2014Q2

REPORT INFORMATION
  Report Type: Spontaneous
  Country: IT (occurrence: IT)
  Receive Date: 20140414
  Receipt Date: 20140414
  Transmission Date: 20141212
  Serious: Yes (Hospitalization)
  Sender: FDA-Public Use
  Company Number: PHHY2014IT041455

PATIENT
  Age: 86 Year
  Sex: Female

DRUGS (9)
  1. ALLOPURINOL [Suspect]
     Dosage: 100 MG, QD
     Route: 048
     Dates: start: 20130101, end: 20140212
  2. TRIATEC [Interacting]
     Indication: HYPERTENSION
     Dosage: 2.5 MG, QD
     Route: 048
     Dates: start: 20140123, end: 20140212
  3. BRILIQUE [Concomitant]
     Indication: ANGIOPLASTY
     Dosage: 2 DF, UNK
     Route: 048
     Dates: start: 20140112, end: 20140212
  4. LASIX [Concomitant]
     Dosage: 25 MG, UNK
     Route: 048
  5. PANTORC [Concomitant]
     Dosage: 20 MG, UNK
     Route: 048
  6. ACETYLSALICYLIC ACID [Concomitant]
     Indication: THROMBOSIS PROPHYLAXIS
     Dosage: 100 MG, UNK
     Route: 048
  7. VENLAFAXINE [Concomitant]
     Indication: DEPRESSION
  8. ATORVASTATIN [Concomitant]
     Dosage: 20 MG, UNK
     Route: 048
     Dates: start: 20140123, end: 20140212
  9. LORAZEPAM [Concomitant]

REACTIONS (4)
  - Renal impairment [Recovered/Resolved]
  - Lip oedema [Recovered/Resolved]
  - Suffocation feeling [Recovered/Resolved]
  - Tongue oedema [Recovered/Resolved]
